FAERS Safety Report 5120417-X (Version None)
Quarter: 2006Q4

REPORT INFORMATION
  Report Type: 
  Country: None (occurrence: None)
  Receive Date: 20061004
  Receipt Date: 20060927
  Transmission Date: 20070319
  Serious: Yes (Hospitalization)
  Sender: FDA-Public Use
  Company Number: JP-JPN-A200603896

PATIENT
  Age: 84 Year
  Sex: Male

DRUGS (9)
  1. VALTREX [Suspect]
     Indication: HERPES ZOSTER
     Dosage: 1000MG THREE TIMES PER DAY
     Route: 048
     Dates: start: 20060901, end: 20060903
  2. ASPIRIN [Concomitant]
     Route: 048
  3. FLIVAS [Concomitant]
     Route: 048
  4. GASMOTIN [Concomitant]
     Route: 048
  5. SOLULACT [Concomitant]
     Route: 042
  6. RENIVACE [Concomitant]
     Route: 048
  7. LASIX [Concomitant]
     Route: 048
  8. CALONAL [Concomitant]
     Route: 048
  9. ROCEPHIN [Concomitant]
     Route: 042

REACTIONS (4)
  - AMNESIA [None]
  - CONFUSIONAL STATE [None]
  - DELIRIUM [None]
  - HALLUCINATION [None]
